FAERS Safety Report 10171638 (Version 1)
Quarter: 2014Q2

REPORT INFORMATION
  Report Type: Spontaneous
  Country: US (occurrence: None)
  Receive Date: 20140428
  Receipt Date: 20140428
  Transmission Date: 20141212
  Serious: Yes (Other)
  Sender: FDA-Public Use
  Company Number: PHEH2014US001407

PATIENT
  Age: 40 Year
  Sex: Female

DRUGS (6)
  1. GILENYA [Suspect]
     Indication: MULTIPLE SCLEROSIS
     Route: 048
     Dates: start: 201307
  2. VICODIN [Concomitant]
  3. ATIVAN [Concomitant]
  4. CELEXA [Concomitant]
  5. AMBIEN [Concomitant]
  6. FLEXERIL [Concomitant]

REACTIONS (1)
  - Hypertension [None]
